FAERS Safety Report 5380364-5 (Version None)
Quarter: 2007Q3

REPORT INFORMATION
  Report Type: 
  Country: None (occurrence: None)
  Receive Date: 20070706
  Receipt Date: 20070607
  Transmission Date: 20080115
  Serious: No
  Sender: FDA-Public Use
  Company Number: A0652243A

PATIENT
  Age: 84 Year
  Sex: Female
  Weight: 59.5 kg

DRUGS (2)
  1. TYKERB [Suspect]
     Indication: DRUG USE FOR UNKNOWN INDICATION
     Dosage: 1000MG IN THE MORNING
     Route: 048
     Dates: start: 20070514
  2. XELODA [Concomitant]
     Dosage: 1000MG TWICE PER DAY
     Route: 048

REACTIONS (4)
  - DIARRHOEA [None]
  - PAIN [None]
  - RASH [None]
  - VOMITING [None]
